FAERS Safety Report 13018120 (Version 1)
Quarter: 2016Q4

REPORT INFORMATION
  Report Type: Report from Study
  Country: US (occurrence: US)
  Receive Date: 20161212
  Receipt Date: 20161212
  Transmission Date: 20170207
  Serious: Yes (Other)
  Sender: FDA-Public Use
  Company Number: US-CIPLA LTD.-2016US23216

PATIENT

DRUGS (2)
  1. PRALATREXATE [Interacting]
     Active Substance: PRALATREXATE
     Dosage: UNK, OVER 3 TO 5 MINUTES ON DAYS 1 AND 15 (EVERY 28 DAYS)
     Route: 042
  2. CARBOPLATIN. [Suspect]
     Active Substance: CARBOPLATIN
     Dosage: AUC=5, FIRST OVER 30 TO 60 MINUTES ON DAY 1 (EVERY 28 DAYS)
     Route: 042

REACTIONS (2)
  - Drug interaction [Unknown]
  - Disease progression [Unknown]
